FAERS Safety Report 21310959 (Version 1)
Quarter: 2022Q3

REPORT INFORMATION
  Report Type: Spontaneous
  Country: US (occurrence: None)
  Receive Date: 20220909
  Receipt Date: 20220909
  Transmission Date: 20221027
  Serious: No
  Sender: FDA-Public Use
  Company Number: US-ARIS GLOBAL-202112-2252

PATIENT
  Age: 67 Year
  Sex: Female

DRUGS (17)
  1. OXERVATE [Suspect]
     Active Substance: CENEGERMIN-BKBJ
     Indication: Neurotrophic keratopathy
     Route: 047
     Dates: start: 20211201
  2. METFORMIN ER GASTRIC [Concomitant]
  3. REFRESH CLASSIC [Concomitant]
     Active Substance: POLYVINYL ALCOHOL\POVIDONE
  4. XIIDRA [Concomitant]
     Active Substance: LIFITEGRAST
  5. RALOXIFENE [Concomitant]
     Active Substance: RALOXIFENE
  6. FAMOTIDINE [Concomitant]
     Active Substance: FAMOTIDINE
  7. ADVAIR DISKUS [Concomitant]
     Active Substance: FLUTICASONE PROPIONATE\SALMETEROL XINAFOATE
     Dosage: 100/50 MCG BLISTER WITH DEVICE
  8. MONTELUKAST SODIUM [Concomitant]
     Active Substance: MONTELUKAST SODIUM
  9. LOSARTAN POTASSIUM [Concomitant]
     Active Substance: LOSARTAN POTASSIUM
  10. HALDOL DECANOATE [Concomitant]
     Active Substance: HALOPERIDOL DECANOATE
  11. CLARITIN-D 12 HOUR [Concomitant]
     Active Substance: LORATADINE\PSEUDOEPHEDRINE SULFATE
  12. BENZTROPINE MESYLATE [Concomitant]
     Active Substance: BENZTROPINE MESYLATE
  13. PRAVASTATIN SODIUM [Concomitant]
     Active Substance: PRAVASTATIN SODIUM
  14. ACIPHEX [Concomitant]
     Active Substance: RABEPRAZOLE SODIUM
  15. CALCIUM\CHOLECALCIFEROL [Concomitant]
     Active Substance: CALCIUM\CHOLECALCIFEROL
     Dosage: 600 MG/12.5 EXTENDED RELEASE TABLETS
  16. VITAMINS [Concomitant]
     Active Substance: VITAMINS
  17. DOXYCYCLINE HYCLATE [Concomitant]
     Active Substance: DOXYCYCLINE HYCLATE

REACTIONS (6)
  - Eye pain [Unknown]
  - Foreign body sensation in eyes [Unknown]
  - Cough [Unknown]
  - Rhinorrhoea [Unknown]
  - Sneezing [Unknown]
  - Product dose omission issue [Unknown]

NARRATIVE: CASE EVENT DATE: 20211204
